FAERS Safety Report 24612716 (Version 1)
Quarter: 2024Q4

REPORT INFORMATION
  Report Type: Spontaneous
  Country: FR (occurrence: FR)
  Receive Date: 20241113
  Receipt Date: 20241113
  Transmission Date: 20250115
  Serious: Yes (Hospitalization, Other)
  Sender: SANDOZ
  Company Number: FR-SANDOZ-SDZ2024FR094155

PATIENT
  Age: 47 Year
  Sex: Female

DRUGS (11)
  1. ALPRAZOLAM [Suspect]
     Active Substance: ALPRAZOLAM
     Indication: Anxiety disorder
     Dosage: BINGE DRINKING (ONE-OFF CONSUMPTION IN LARGE QUANTITIES)
     Route: 048
     Dates: start: 2021
  2. ALPRAZOLAM [Suspect]
     Active Substance: ALPRAZOLAM
     Indication: Depression
  3. AMITRIPTYLINE [Suspect]
     Active Substance: AMITRIPTYLINE
     Indication: Product used for unknown indication
     Dosage: UNK
     Route: 065
     Dates: start: 202409
  4. BROMAZEPAM [Suspect]
     Active Substance: BROMAZEPAM
     Indication: Depression
     Dosage: INCREASED CONSUMPTION SINCE THE BEGINNING OF SEPTEMBER 2024
     Route: 065
     Dates: start: 202409
  5. BROMAZEPAM [Suspect]
     Active Substance: BROMAZEPAM
     Indication: Anxiety disorder
     Dosage: BINGE DRINKING (ONE-OFF CONSUMPTION IN LARGE QUANTITIES)
     Route: 048
     Dates: start: 2021
  6. CANNABIDIOL [Suspect]
     Active Substance: CANNABIDIOL
     Indication: Product used for unknown indication
     Dosage: UNK
     Route: 065
  7. CLOBAZAM [Suspect]
     Active Substance: CLOBAZAM
     Indication: Anxiety disorder
     Dosage: UNK
     Route: 065
     Dates: start: 202409
  8. CLOBAZAM [Suspect]
     Active Substance: CLOBAZAM
     Indication: Depression
  9. ALCOHOL [Suspect]
     Active Substance: ALCOHOL
     Indication: Product used for unknown indication
     Dosage: UNK
     Route: 048
     Dates: start: 202408
  10. OXAZEPAM [Suspect]
     Active Substance: OXAZEPAM
     Indication: Anxiety disorder
     Dosage: UNK
     Route: 065
     Dates: start: 202409
  11. OXAZEPAM [Suspect]
     Active Substance: OXAZEPAM
     Indication: Depression

REACTIONS (5)
  - Coma [Unknown]
  - Toxicity to various agents [Unknown]
  - Drug dependence [Not Recovered/Not Resolved]
  - Withdrawal syndrome [Unknown]
  - Prescription drug used without a prescription [Unknown]
